FAERS Safety Report 25969170 (Version 1)
Quarter: 2025Q4

REPORT INFORMATION
  Report Type: Spontaneous
  Country: JP (occurrence: JP)
  Receive Date: 20251028
  Receipt Date: 20251028
  Transmission Date: 20260118
  Serious: Yes (Other)
  Sender: OTSUKA
  Company Number: JP-MMM-Otsuka-9IZKF0XH

PATIENT
  Age: 8 Decade
  Sex: Male

DRUGS (4)
  1. REXULTI [Suspect]
     Active Substance: BREXPIPRAZOLE
     Indication: Dementia Alzheimer^s type
     Dosage: 0.5 MG/DAY
     Dates: end: 202510
  2. REXULTI [Suspect]
     Active Substance: BREXPIPRAZOLE
     Indication: Psychomotor hyperactivity
  3. DAYVIGO [Suspect]
     Active Substance: LEMBOREXANT
     Indication: Dementia Alzheimer^s type
     Dosage: UNK
  4. DAYVIGO [Suspect]
     Active Substance: LEMBOREXANT
     Indication: Psychomotor hyperactivity

REACTIONS (1)
  - Hepatic function abnormal [Recovered/Resolved]

NARRATIVE: CASE EVENT DATE: 20251001
